FAERS Safety Report 9167545 (Version 1)
Quarter: 2013Q1

REPORT INFORMATION
  Report Type: Spontaneous
  Country: US (occurrence: None)
  Receive Date: 20130301
  Receipt Date: 20130301
  Transmission Date: 20140127
  Serious: Yes (Hospitalization)
  Sender: FDA-Public Use
  Company Number: UTC-029444

PATIENT
  Age: 49 Year
  Sex: Female
  Weight: 53.64 kg

DRUGS (3)
  1. REMODULIN [Suspect]
     Indication: PULMONARY ARTERIAL HYPERTENSION
     Dates: start: 20121123, end: 20130215
  2. ADCIRCA (TADALAFIL) [Concomitant]
  3. LETAIRIS (AMBRISENTAN) (TABLET) (AMBRISENTAN) [Concomitant]

REACTIONS (4)
  - Nausea [None]
  - Vomiting [None]
  - Pain [None]
  - Dyspnoea [None]
